FAERS Safety Report 6203888-7 (Version None)
Quarter: 2009Q2

REPORT INFORMATION
  Report Type: 
  Country: None (occurrence: None)
  Receive Date: 20090526
  Receipt Date: 20090526
  Transmission Date: 20091009
  Serious: Yes (Other)
  Sender: FDA-Public Use
  Company Number: None

PATIENT
  Age: 32 Year
  Sex: Male
  Weight: 99.7913 kg

DRUGS (1)
  1. NYSTATIN [Suspect]
     Indication: ORAL FUNGAL INFECTION
     Dosage: 1 TEASPOON 4 TIMES DAILY
     Dates: start: 20090520, end: 20090525

REACTIONS (1)
  - MUSCLE TWITCHING [None]
